FAERS Safety Report 9803495 (Version 1)
Quarter: 2014Q1

REPORT INFORMATION
  Report Type: Spontaneous
  Country: CA (occurrence: None)
  Receive Date: 20140103
  Receipt Date: 20140103
  Transmission Date: 20141002
  Serious: Yes (Hospitalization)
  Sender: FDA-Public Use
  Company Number: 2013P1022157

PATIENT
  Age: 29 Year
  Sex: Female

DRUGS (9)
  1. BUPROPION [Suspect]
     Route: 042
  2. RITONAVIR [Concomitant]
  3. ATAZANAVIR [Concomitant]
  4. EMTRICITABINE/TENOFOVIR [Concomitant]
  5. OLANZAPINE [Concomitant]
  6. LITHIUM [Concomitant]
  7. VENLAFAXINE [Concomitant]
  8. DIVALPROEX [Concomitant]
  9. BUPRENORPHINE/NALOXONE [Concomitant]

REACTIONS (8)
  - Euphoric mood [None]
  - Drug dependence [None]
  - Treatment noncompliance [None]
  - Irritability [None]
  - Affect lability [None]
  - Depressed mood [None]
  - Drug withdrawal syndrome [None]
  - Drug abuse [None]
